FAERS Safety Report 9742812 (Version 2)
Quarter: 2014Q1

REPORT INFORMATION
  Report Type: Spontaneous
  Country: US (occurrence: US)
  Receive Date: 20131210
  Receipt Date: 20140213
  Transmission Date: 20141002
  Serious: No
  Sender: FDA-Public Use
  Company Number: US-GILEAD-2013-0089469

PATIENT
  Age: 79 Year
  Sex: Female

DRUGS (6)
  1. LETAIRIS [Suspect]
     Indication: PULMONARY ARTERIAL HYPERTENSION
     Dates: start: 20131118
  2. LETAIRIS [Suspect]
     Indication: CHRONIC OBSTRUCTIVE PULMONARY DISEASE
  3. LETAIRIS [Suspect]
     Indication: ATRIAL FIBRILLATION
  4. LETAIRIS [Suspect]
     Indication: AORTIC VALVE REPLACEMENT
  5. LETAIRIS [Suspect]
     Indication: ASTHMA
  6. LETAIRIS [Suspect]
     Indication: CARDIAC FAILURE CONGESTIVE

REACTIONS (4)
  - Swelling [Recovered/Resolved]
  - Fluid retention [Recovered/Resolved]
  - Dyspnoea [Unknown]
  - Fatigue [Unknown]
